FAERS Safety Report 22645877 (Version 2)
Quarter: 2023Q2

REPORT INFORMATION
  Report Type: Report from Study
  Country: US (occurrence: US)
  Receive Date: 20230627
  Receipt Date: 20230630
  Transmission Date: 20230722
  Serious: No
  Sender: FDA-Public Use
  Company Number: US-002147023-NVSC2023US144058

PATIENT
  Sex: Female

DRUGS (5)
  1. COSENTYX [Suspect]
     Active Substance: SECUKINUMAB
     Indication: Psoriasis
     Dosage: UNK
     Route: 065
  2. CLOBETASOL [Suspect]
     Active Substance: CLOBETASOL
     Indication: Psoriasis
     Dosage: UNK
     Route: 061
  3. TRIAMCINOLONE [Suspect]
     Active Substance: TRIAMCINOLONE
     Indication: Psoriasis
     Dosage: UNK
     Route: 065
  4. CHLORHEXIDINE [Suspect]
     Active Substance: CHLORHEXIDINE
     Indication: Psoriasis
     Dosage: UNK
     Route: 065
  5. ALBUTEROL [Suspect]
     Active Substance: ALBUTEROL
     Indication: Psoriasis
     Dosage: UNK (ALBUTEROL SULFATE)

REACTIONS (13)
  - Skin hypopigmentation [Recovering/Resolving]
  - Insomnia [Unknown]
  - Malaise [Unknown]
  - Hidradenitis [Unknown]
  - Skin weeping [Unknown]
  - Dermatitis acneiform [Unknown]
  - Pustule [Unknown]
  - Papule [Unknown]
  - Swelling [Unknown]
  - Pruritus [Unknown]
  - Psoriasis [Recovering/Resolving]
  - Erythema [Unknown]
  - Treatment failure [Unknown]
